FAERS Safety Report 4435360-9 (Version None)
Quarter: 2004Q3

REPORT INFORMATION
  Report Type: 
  Country: None (occurrence: None)
  Receive Date: 20040826
  Receipt Date: 20040818
  Transmission Date: 20050211
  Serious: Yes (Death, Hospitalization)
  Sender: FDA-Public Use
  Company Number: 200310576BFR

PATIENT
  Age: 83 Year
  Sex: Female

DRUGS (16)
  1. CIFLOX (CIPROFLOXACIN) [Suspect]
     Indication: ESCHAR
     Dosage: 1000 MG, TOTAL DAILY, ORAL
     Route: 048
     Dates: start: 20030801, end: 20030802
  2. PYOSTACINE [Concomitant]
  3. MORPHINE [Concomitant]
  4. INSULIN [Concomitant]
  5. GENTAMYCIN SULFATE [Concomitant]
  6. ASPEGIC/FRA/ [Concomitant]
  7. LOXEN [Concomitant]
  8. CREON [Concomitant]
  9. ISKEDYL [Concomitant]
  10. MIXTARD/DEN [Concomitant]
  11. CORENITEC [Concomitant]
  12. DI-ANTALVIC [Concomitant]
  13. CLAFORAN [Concomitant]
  14. FORTUM /NET/ [Concomitant]
  15. AMIKACIN [Concomitant]
  16. VANCOMYCIN [Concomitant]

REACTIONS (14)
  - ANAPHYLACTIC REACTION [None]
  - ANGIONEUROTIC OEDEMA [None]
  - ARTERIOPATHIC DISEASE [None]
  - ARTHRITIS [None]
  - COMA [None]
  - CORONARY ARTERY DISEASE [None]
  - DEPRESSED LEVEL OF CONSCIOUSNESS [None]
  - DYSPHAGIA [None]
  - HEPATIC NECROSIS [None]
  - HYPERTENSION [None]
  - LUNG DISORDER [None]
  - NEPHROPATHY [None]
  - RENAL FAILURE [None]
  - SEPSIS [None]
